FAERS Safety Report 17563523 (Version 1)
Quarter: 2020Q1

REPORT INFORMATION
  Report Type: Spontaneous
  Country: GB (occurrence: GB)
  Receive Date: 20200320
  Receipt Date: 20200320
  Transmission Date: 20200409
  Serious: Yes (Death, Other)
  Sender: FDA-Public Use
  Company Number: GB-ACCORD-158941

PATIENT
  Age: 4 Decade
  Sex: Male
  Weight: 70 kg

DRUGS (6)
  1. VALPROIC ACID. [Concomitant]
     Active Substance: VALPROIC ACID
  2. CLOZAPINE. [Suspect]
     Active Substance: CLOZAPINE
     Indication: SCHIZOPHRENIA
     Dosage: 150MG IN MORNING, 200MG AT NIGHT
     Route: 048
  3. SALBUTAMOL [Concomitant]
     Active Substance: ALBUTEROL
     Dosage: INHALER
  4. SENNA ALEXANDRINA [Concomitant]
     Active Substance: SENNA LEAF
  5. HYOSCINE [Concomitant]
     Active Substance: SCOPOLAMINE
  6. OMEPRAZOLE. [Concomitant]
     Active Substance: OMEPRAZOLE

REACTIONS (2)
  - Intestinal obstruction [Not Recovered/Not Resolved]
  - Intestinal ischaemia [Fatal]
